FAERS Safety Report 5798578-9 (Version None)
Quarter: 2008Q3

REPORT INFORMATION
  Report Type: 
  Country: None (occurrence: None)
  Receive Date: 20080702
  Receipt Date: 20080624
  Transmission Date: 20090109
  Serious: Yes (Other)
  Sender: FDA-Public Use
  Company Number: PHHO2008GR07887

PATIENT
  Sex: Female
  Weight: 80 kg

DRUGS (1)
  1. ICL670A ICL+DISTAB [Suspect]
     Indication: HAEMOSIDEROSIS
     Dosage: 1625 MG, QD
     Route: 048
     Dates: start: 20030901, end: 20080520

REACTIONS (3)
  - ABDOMINAL PAIN [None]
  - DIAPHRAGMATIC HERNIA [None]
  - PEPTIC ULCER [None]
